FAERS Safety Report 9513947 (Version 3)
Quarter: 2013Q4

REPORT INFORMATION
  Report Type: Spontaneous
  Country: CN (occurrence: CN)
  Receive Date: 20130910
  Receipt Date: 20131023
  Transmission Date: 20140711
  Serious: Yes (Other)
  Sender: FDA-Public Use
  Company Number: CN-BRISTOL-MYERS SQUIBB COMPANY-19228931

PATIENT
  Age: 58 Year
  Sex: Male

DRUGS (2)
  1. BYETTA [Suspect]
     Indication: DIABETES MELLITUS
     Dosage: O.04M DAILY ON 22MAR2013?13AUG13-19AUG13,-TEMPORARILY DISCONTINUED?RESTARTED-19AUG13
     Route: 058
     Dates: start: 20130322, end: 20130821
  2. METFORMIN [Concomitant]

REACTIONS (2)
  - Gastric ulcer [Unknown]
  - Abdominal pain [Not Recovered/Not Resolved]
